FAERS Safety Report 7795035-5 (Version None)
Quarter: 2011Q4

REPORT INFORMATION
  Report Type: 
  Country: None (occurrence: None)
  Receive Date: 20111004
  Receipt Date: 20111003
  Transmission Date: 20120403
  Serious: Yes (Other)
  Sender: FDA-Public Use
  Company Number: PHEH2011US03259

PATIENT
  Sex: Male
  Weight: 81.633 kg

DRUGS (13)
  1. FOLIC ACID [Concomitant]
     Dosage: 40 MG
  2. VITAMIN B6 [Concomitant]
     Dosage: 1 DF,
     Route: 065
  3. CALCIUM CARBONATE [Concomitant]
     Dosage: UNK
     Route: 065
  4. PREDNISONE [Concomitant]
     Dosage: 15 MG ALT WITH 5 MG DAILY
  5. EXJADE [Suspect]
     Indication: IRON OVERLOAD
     Dosage: 1500 MG, QD
     Route: 048
     Dates: start: 20110201, end: 20110816
  6. NEXIUM [Concomitant]
     Dosage: UNK
  7. ASPIRIN [Concomitant]
     Dosage: 81 MG, DAILY
     Route: 065
  8. COREG [Concomitant]
     Dosage: UNK
     Route: 048
  9. NOVOLOG [Concomitant]
     Dosage: 100 U/ ML
  10. METFORMIN HCL [Concomitant]
     Dosage: 1000 MG, BID
  11. HYDROCHLOROTHIAZIDE [Concomitant]
     Dosage: UNK
     Route: 048
  12. BONIVA [Concomitant]
     Dosage: 150 MG, ONCE A MONTH
  13. LANTUS [Concomitant]
     Dosage: 100 U,/ ML

REACTIONS (4)
  - VOMITING [None]
  - ABDOMINAL DISCOMFORT [None]
  - CONSTIPATION [None]
  - MALAISE [None]
